FAERS Safety Report 19395583 (Version 1)
Quarter: 2021Q2

REPORT INFORMATION
  Report Type: Report from Study
  Country: US (occurrence: US)
  Receive Date: 20210609
  Receipt Date: 20210609
  Transmission Date: 20210717
  Serious: Yes (Hospitalization, Other)
  Sender: FDA-Public Use
  Company Number: US-SHIRE-US202010711

PATIENT
  Age: 32 Year
  Sex: Female
  Weight: 52 kg

DRUGS (9)
  1. XIFAXAN [Concomitant]
     Active Substance: RIFAXIMIN
     Indication: DIARRHOEA
     Dosage: 550 MILLIGRAM, BID
     Route: 048
     Dates: start: 20191108
  2. SELEGILINE [Concomitant]
     Active Substance: SELEGILINE
     Indication: PRODUCT USED FOR UNKNOWN INDICATION
     Dosage: 6.0 MILLIGRAM, QD
     Route: 062
     Dates: start: 20191224, end: 20200123
  3. TEDUGLUTIDE [Suspect]
     Active Substance: TEDUGLUTIDE
     Indication: SHORT-BOWEL SYNDROME
     Dosage: 5.0 MILLIGRAM (TED DAILY DOSES 0.0500 MG/KG, TED DOSES PER WEEK 7)
     Route: 065
     Dates: start: 20190531
  4. EMSAM [Concomitant]
     Active Substance: SELEGILINE
     Indication: PRODUCT USED FOR UNKNOWN INDICATION
  5. ZOFRAN [Concomitant]
     Active Substance: ONDANSETRON HYDROCHLORIDE
     Indication: NAUSEA
     Dosage: 4.0 MILLIGRAM, PRN
     Route: 048
     Dates: start: 20180917
  6. TEDUGLUTIDE [Suspect]
     Active Substance: TEDUGLUTIDE
     Indication: SHORT-BOWEL SYNDROME
     Dosage: 5.0 MILLIGRAM (TED DAILY DOSES 0.0500 MG/KG, TED DOSES PER WEEK 7)
     Route: 065
     Dates: start: 20190531
  7. TEDUGLUTIDE [Suspect]
     Active Substance: TEDUGLUTIDE
     Indication: SHORT-BOWEL SYNDROME
     Dosage: 5.0 MILLIGRAM (TED DAILY DOSES 0.0500 MG/KG, TED DOSES PER WEEK 7)
     Route: 065
     Dates: start: 20190531
  8. AMBIEN [Concomitant]
     Active Substance: ZOLPIDEM TARTRATE
     Indication: SLEEP DISORDER
     Dosage: 5.0 MILLIGRAM, PRN
     Route: 048
     Dates: start: 20180917
  9. TEDUGLUTIDE [Suspect]
     Active Substance: TEDUGLUTIDE
     Indication: SHORT-BOWEL SYNDROME
     Dosage: 5.0 MILLIGRAM (TED DAILY DOSES 0.0500 MG/KG, TED DOSES PER WEEK 7)
     Route: 065
     Dates: start: 20190531

REACTIONS (2)
  - Bacteraemia [Not Recovered/Not Resolved]
  - Myalgia [Recovered/Resolved]

NARRATIVE: CASE EVENT DATE: 20191216
